FAERS Safety Report 19707998 (Version 1)
Quarter: 2021Q3

REPORT INFORMATION
  Report Type: Report from Study
  Country: IN (occurrence: IN)
  Receive Date: 20210817
  Receipt Date: 20210817
  Transmission Date: 20211014
  Serious: Yes (Death, Hospitalization)
  Sender: FDA-Public Use
  Company Number: NVSC2021IN185822

PATIENT
  Age: 61 Year
  Sex: Male

DRUGS (1)
  1. NEORAL [Suspect]
     Active Substance: CYCLOSPORINE
     Indication: LIVER DISORDER
     Dosage: 100 MG, BID
     Route: 065
     Dates: start: 20191106

REACTIONS (1)
  - SARS-CoV-2 test positive [Fatal]

NARRATIVE: CASE EVENT DATE: 20210225
